FAERS Safety Report 19025060 (Version 1)
Quarter: 2021Q1

REPORT INFORMATION
  Report Type: Spontaneous
  Country: US (occurrence: US)
  Receive Date: 20210316
  Receipt Date: 20210316
  Transmission Date: 20210420
  Serious: Yes (Death)
  Sender: FDA-Public Use
  Company Number: None

PATIENT
  Age: 75 Year
  Sex: Female

DRUGS (12)
  1. DONEPEZIL. [Suspect]
     Active Substance: DONEPEZIL
  2. IRBESARTAN. [Suspect]
     Active Substance: IRBESARTAN
  3. ESCITALOPRAM [Suspect]
     Active Substance: ESCITALOPRAM OXALATE
  4. AMLODIPINE [Suspect]
     Active Substance: AMLODIPINE BESYLATE
  5. ASPIRIN. [Suspect]
     Active Substance: ASPIRIN
  6. ALECENSA [Suspect]
     Active Substance: ALECTINIB HYDROCHLORIDE
     Indication: BRONCHIAL CARCINOMA
     Route: 048
     Dates: start: 20210218, end: 20210315
  7. MONTELUKAST [Suspect]
     Active Substance: MONTELUKAST SODIUM
  8. AMANTADINE. [Suspect]
     Active Substance: AMANTADINE HYDROCHLORIDE
  9. FLUOXETINE [Suspect]
     Active Substance: FLUOXETINE HYDROCHLORIDE
  10. MONTELUKAST [Suspect]
     Active Substance: MONTELUKAST SODIUM
  11. MEMANTINE. [Suspect]
     Active Substance: MEMANTINE
  12. ELIQUIS [Suspect]
     Active Substance: APIXABAN

REACTIONS (1)
  - Death [None]

NARRATIVE: CASE EVENT DATE: 20210316
